FAERS Safety Report 4273212-8 (Version None)
Quarter: 2004Q1

REPORT INFORMATION
  Report Type: 
  Country: None (occurrence: None)
  Receive Date: 20040116
  Receipt Date: 20040109
  Transmission Date: 20041129
  Serious: Yes (Hospitalization, Other)
  Sender: FDA-Public Use
  Company Number: PHRM2004FR00513

PATIENT
  Age: 50 Year
  Sex: Female

DRUGS (4)
  1. TRILEPTAL [Suspect]
     Indication: BIPOLAR DISORDER
     Dosage: 600 MG DAILY
     Route: 048
  2. HALDOL [Suspect]
     Indication: BIPOLAR DISORDER
     Dosage: 4 MG, QID
     Route: 048
     Dates: start: 20031201
  3. PREVISCAN [Concomitant]
     Indication: THROMBOSIS PROPHYLAXIS
     Dates: start: 20031001
  4. VALIUM [Concomitant]
     Indication: BIPOLAR DISORDER
     Dosage: UNK, UNK

REACTIONS (3)
  - BRADYCARDIA [None]
  - DRUG INTERACTION [None]
  - HYPOTENSION [None]
